FAERS Safety Report 7771328-2 (Version None)
Quarter: 2011Q3

REPORT INFORMATION
  Report Type: 
  Country: None (occurrence: None)
  Receive Date: 20110922
  Receipt Date: 20110917
  Transmission Date: 20111222
  Serious: Yes (Hospitalization)
  Sender: FDA-Public Use
  Company Number: US-BRISTOL-MYERS SQUIBB COMPANY-16070179

PATIENT
  Age: 80 Year
  Sex: Male
  Weight: 89 kg

DRUGS (2)
  1. NEUPOGEN [Suspect]
     Indication: MALIGNANT MELANOMA
     Route: 058
     Dates: start: 20110627
  2. IPILIMUMAB [Suspect]
     Indication: MALIGNANT MELANOMA
     Dosage: 10MG/KG IV OVER 90 MIN ON DAY1.CYCLE 4 DAY 1.DELAYED FOR 14DAYS.LAST DOSE ON 08AUG11.
     Route: 042
     Dates: start: 20110627

REACTIONS (1)
  - PNEUMONIA [None]
